FAERS Safety Report 17610323 (Version 1)
Quarter: 2020Q2

REPORT INFORMATION
  Report Type: Spontaneous
  Country: FR (occurrence: FR)
  Receive Date: 20200401
  Receipt Date: 20200401
  Transmission Date: 20200713
  Serious: Yes (Hospitalization)
  Sender: FDA-Public Use
  Company Number: FR-ROCHE-2574569

PATIENT
  Age: 20 Year
  Sex: Male

DRUGS (3)
  1. HALDOL [Interacting]
     Active Substance: HALOPERIDOL
     Indication: DELIRIUM
     Route: 048
     Dates: start: 20200224, end: 20200226
  2. NOZINAN [LEVOMEPROMAZINE] [Interacting]
     Active Substance: LEVOMEPROMAZINE
     Indication: DELIRIUM
     Route: 048
     Dates: start: 20200224, end: 20200226
  3. VALIUM [Suspect]
     Active Substance: DIAZEPAM
     Indication: DELIRIUM
     Dosage: 1 PERCENT ROCK
     Route: 048
     Dates: start: 20200224, end: 20200226

REACTIONS (3)
  - Drug interaction [Unknown]
  - Dyskinesia [Recovering/Resolving]
  - Coma [Recovered/Resolved]

NARRATIVE: CASE EVENT DATE: 20200226
